FAERS Safety Report 6917719-0 (Version None)
Quarter: 2010Q3

REPORT INFORMATION
  Report Type: 
  Country: None (occurrence: None)
  Receive Date: 20100810
  Receipt Date: 20100728
  Transmission Date: 20110219
  Serious: Yes (Hospitalization, Disabling)
  Sender: FDA-Public Use
  Company Number: RS-WYE-H16795110

PATIENT

DRUGS (8)
  1. CORDARONE [Suspect]
     Indication: NODAL ARRHYTHMIA
     Route: 064
  2. CORDARONE [Suspect]
     Indication: TACHYCARDIA FOETAL
     Route: 064
  3. CORDARONE [Suspect]
  4. CORDARONE [Suspect]
     Route: 065
  5. CORDARONE [Suspect]
     Route: 065
  6. DIGOXIN [Concomitant]
     Route: 064
  7. PROPRANOLOL [Concomitant]
     Dosage: DOSE AND FREQUENCY NOT SPECIFIED
     Route: 065
  8. PROPRANOLOL [Concomitant]
     Dosage: AT 12 MONTHS OF AGE DOSE WAS 10+5+5 MG/DAY
     Route: 065

REACTIONS (3)
  - DEVELOPMENTAL DELAY [None]
  - DRUG EXPOSURE DURING PREGNANCY [None]
  - FOOT DEFORMITY [None]
